FAERS Safety Report 9248482 (Version 1)
Quarter: 2013Q2

REPORT INFORMATION
  Report Type: Spontaneous
  Country: JP (occurrence: JP)
  Receive Date: 20130423
  Receipt Date: 20130423
  Transmission Date: 20140414
  Serious: Yes (Hospitalization)
  Sender: FDA-Public Use
  Company Number: JP-ELI_LILLY_AND_COMPANY-JP201304003163

PATIENT
  Age: 64 Year
  Sex: Male

DRUGS (1)
  1. CYMBALTA [Suspect]
     Dosage: 40 MG, QD
     Route: 048
     Dates: start: 20130309, end: 20130405

REACTIONS (1)
  - Interstitial lung disease [Recovering/Resolving]
